FAERS Safety Report 9096906 (Version 1)
Quarter: 2013Q1

REPORT INFORMATION
  Report Type: Spontaneous
  Country: CA (occurrence: CA)
  Receive Date: 20130211
  Receipt Date: 20130211
  Transmission Date: 20140127
  Serious: Yes (Hospitalization)
  Sender: FDA-Public Use
  Company Number: CA-AMGEN-CANSP2013008025

PATIENT
  Age: 64 Year
  Sex: Male

DRUGS (10)
  1. NEUPOGEN [Suspect]
     Indication: PRODUCT USED FOR UNKNOWN INDICATION
     Dosage: UNK, 5 REPEATS
     Dates: start: 20130117
  2. METFORMIN                          /00082702/ [Concomitant]
     Dosage: 500 MG, UNK
  3. SULFATRIM DS [Concomitant]
     Dosage: 800 MG, UNK
  4. CLOPIDOGREL                        /01220707/ [Concomitant]
     Dosage: 75 MG, UNK
  5. VALACYCLOVIR HCL [Concomitant]
     Dosage: 500 MG, UNK
  6. ATENOLOL [Concomitant]
     Dosage: 50 MG, UNK
  7. ATORVASTATIN [Concomitant]
     Dosage: 10 UNK, UNK
  8. RABEPRAZOLE [Concomitant]
     Dosage: 20 MG, UNK
  9. ZYLOPRIM [Concomitant]
     Dosage: 200 MG, UNK
  10. COLCHICINE [Concomitant]
     Dosage: 6 MG, UNK

REACTIONS (1)
  - Bronchopneumonia [Not Recovered/Not Resolved]
